FAERS Safety Report 22593269 (Version 1)
Quarter: 2023Q2

REPORT INFORMATION
  Report Type: Report from Study
  Country: CA (occurrence: CA)
  Receive Date: 20230613
  Receipt Date: 20230613
  Transmission Date: 20230722
  Serious: Yes (Other)
  Sender: FDA-Public Use
  Company Number: CA-JNJFOC-20230615003

PATIENT
  Age: 68 Year
  Sex: Female

DRUGS (2)
  1. REMICADE [Suspect]
     Active Substance: INFLIXIMAB
     Indication: Rheumatoid arthritis
     Route: 042
     Dates: start: 20220421
  2. AMOXICILLIN\CLAVULANIC ACID [Suspect]
     Active Substance: AMOXICILLIN\CLAVULANIC ACID
     Indication: Device related infection
     Dosage: AMOXICILLIN / CLAVELIN? 21 TABLETS 1 TABLET EVERY 8 HRS 3 IN 24HRS
     Route: 065
     Dates: start: 20230603

REACTIONS (12)
  - Device related infection [Unknown]
  - Dental implantation [Unknown]
  - Rheumatoid arthritis [Not Recovered/Not Resolved]
  - Fungal infection [Unknown]
  - Infection [Unknown]
  - Mass [Unknown]
  - Muscular weakness [Unknown]
  - Abdominal discomfort [Unknown]
  - Headache [Unknown]
  - Pain in extremity [Unknown]
  - Drug ineffective [Unknown]
  - Needle issue [Unknown]

NARRATIVE: CASE EVENT DATE: 20230601
